FAERS Safety Report 7379750-3 (Version None)
Quarter: 2011Q1

REPORT INFORMATION
  Report Type: 
  Country: None (occurrence: None)
  Receive Date: 20110329
  Receipt Date: 20110315
  Transmission Date: 20110831
  Serious: Yes (Other)
  Sender: FDA-Public Use
  Company Number: TR-RANBAXY-2010RR-40516

PATIENT
  Age: 1 Year
  Sex: Female

DRUGS (4)
  1. ONDANSETRON [Suspect]
     Indication: CHEMOTHERAPY
     Dosage: 5 MG/M2, UNK
     Route: 042
  2. GRANISETRON HCL [Concomitant]
     Dosage: 0.04 MG/KG, UNK
  3. MESNA [Concomitant]
  4. IFOSFAMIDE [Concomitant]

REACTIONS (1)
  - ANAPHYLACTIC REACTION [None]
